FAERS Safety Report 4612011-1 (Version None)
Quarter: 2005Q1

REPORT INFORMATION
  Report Type: 
  Country: None (occurrence: None)
  Receive Date: 20050317
  Receipt Date: 20041028
  Transmission Date: 20050727
  Serious: Yes (Life-Threatening, Hospitalization, Disabling, Other)
  Sender: FDA-Public Use
  Company Number: US-MERCK-0410USA04306

PATIENT
  Age: 67 Year
  Sex: Female
  Weight: 94 kg

DRUGS (8)
  1. VIOXX [Suspect]
     Indication: OSTEOARTHRITIS
     Route: 048
     Dates: start: 20001003, end: 20010312
  2. VIOXX [Suspect]
     Route: 048
     Dates: start: 20010313, end: 20040930
  3. VIOXX [Suspect]
     Route: 048
     Dates: start: 20000805, end: 20001002
  4. SYNTHROID [Concomitant]
     Indication: HYPOTHYROIDISM
     Route: 065
  5. SYNTHROID [Concomitant]
     Route: 065
  6. OGEN [Concomitant]
     Route: 065
  7. ZYRTEC [Concomitant]
     Route: 065
  8. DOXYCYCLINE [Concomitant]
     Route: 065
     Dates: start: 20000802, end: 20000808

REACTIONS (29)
  - ANAEMIA [None]
  - ANXIETY [None]
  - CELLULITIS [None]
  - CHEST PAIN [None]
  - CORONARY ARTERY DISEASE [None]
  - DEPRESSION [None]
  - DERMAL CYST [None]
  - DIABETES MELLITUS NON-INSULIN-DEPENDENT [None]
  - EUSTACHIAN TUBE DYSFUNCTION [None]
  - EXOSTOSIS [None]
  - FIBROCYSTIC BREAST DISEASE [None]
  - FIBROMYALGIA [None]
  - GASTROOESOPHAGEAL REFLUX DISEASE [None]
  - HYPERTENSION [None]
  - INTERVERTEBRAL DISC DEGENERATION [None]
  - INTERVERTEBRAL DISC PROTRUSION [None]
  - JOINT SPRAIN [None]
  - LUMBAR SPINAL STENOSIS [None]
  - MEDICATION ERROR [None]
  - MUSCLE SPASMS [None]
  - MYOCARDIAL INFARCTION [None]
  - MYOCARDIAL ISCHAEMIA [None]
  - OEDEMA PERIPHERAL [None]
  - OSTEOARTHRITIS [None]
  - PULMONARY OEDEMA [None]
  - SEBORRHOEIC KERATOSIS [None]
  - SINUSITIS [None]
  - TENDONITIS [None]
  - VERTIGO POSITIONAL [None]
